FAERS Safety Report 7564557-4 (Version None)
Quarter: 2011Q2

REPORT INFORMATION
  Report Type: 
  Country: None (occurrence: None)
  Receive Date: 20110622
  Receipt Date: 20100618
  Transmission Date: 20111010
  Serious: Yes (Other)
  Sender: FDA-Public Use
  Company Number: US-MYLANLABS-2010S1009552

PATIENT
  Age: 26 Year
  Sex: Male

DRUGS (7)
  1. CLOZAPINE [Suspect]
     Indication: PSYCHOTIC DISORDER
     Route: 048
  2. CLOZAPINE [Suspect]
     Indication: AUTISM
     Route: 048
  3. RISPERDAL [Concomitant]
  4. NEURONTIN [Concomitant]
     Dosage: 300MG TWICE DAILY AND 600MG QHS
  5. CLOZAPINE [Suspect]
     Indication: INTERMITTENT EXPLOSIVE DISORDER
     Route: 048
  6. NEURONTIN [Concomitant]
  7. NEURONTIN [Concomitant]
     Dosage: X2 DISES

REACTIONS (1)
  - GRANULOCYTOPENIA [None]
